FAERS Safety Report 24317881 (Version 1)
Quarter: 2024Q3

REPORT INFORMATION
  Report Type: Spontaneous
  Country: US (occurrence: None)
  Receive Date: 20240913
  Receipt Date: 20240913
  Transmission Date: 20241017
  Serious: Yes (Other)
  Sender: Public
  Company Number: None

PATIENT
  Age: 59 Year
  Sex: Female
  Weight: 63 kg

DRUGS (1)
  1. GAMMAGARD [Suspect]
     Active Substance: HUMAN IMMUNOGLOBULIN G
     Dosage: 30 G GRAM(S) EVERY 4 WEEKS INTRAVENOUS ?
     Route: 042
     Dates: start: 20200116

REACTIONS (2)
  - Peripheral swelling [None]
  - Thrombosis [None]

NARRATIVE: CASE EVENT DATE: 20240306
